FAERS Safety Report 14346157 (Version 1)
Quarter: 2018Q1

REPORT INFORMATION
  Report Type: Report from Study
  Country: US (occurrence: US)
  Receive Date: 20180103
  Receipt Date: 20180103
  Transmission Date: 20180509
  Serious: No
  Sender: FDA-Public Use
  Company Number: PHEH2017US041099

PATIENT
  Sex: Female

DRUGS (1)
  1. KISQALI [Suspect]
     Active Substance: RIBOCICLIB
     Indication: BREAST CANCER
     Dosage: 200 MG, TID
     Route: 048

REACTIONS (10)
  - Hair growth abnormal [Unknown]
  - Feeling of body temperature change [Unknown]
  - Fatigue [Unknown]
  - Decreased appetite [Unknown]
  - Therapeutic response unexpected [Unknown]
  - Back pain [Unknown]
  - Chills [Unknown]
  - Malaise [Recovered/Resolved]
  - Headache [Unknown]
  - Vomiting [Recovered/Resolved]
